FAERS Safety Report 6713668-1 (Version None)
Quarter: 2010Q2

REPORT INFORMATION
  Report Type: 
  Country: None (occurrence: None)
  Receive Date: 20100503
  Receipt Date: 20100420
  Transmission Date: 20101027
  Serious: Yes (Hospitalization)
  Sender: FDA-Public Use
  Company Number: 1000013289

PATIENT
  Age: 93 Year
  Sex: Male

DRUGS (12)
  1. MEMANTINE HCL [Suspect]
     Indication: DEMENTIA ALZHEIMER'S TYPE
     Dosage: 20 MG (20 MG, 1 IN 1 D), ORAL
     Route: 048
     Dates: start: 20050908
  2. SELBEX [Concomitant]
  3. MUCOSOLVAN [Concomitant]
  4. ZANTAC [Concomitant]
  5. TERAMIDE [Concomitant]
  6. ARICEPT [Concomitant]
  7. SELBEX [Concomitant]
  8. MUCOSOLVAN [Concomitant]
  9. ZANTAC [Concomitant]
  10. TETRAMIDE [Concomitant]
  11. ALOSENN [Concomitant]
  12. URSODIOL [Concomitant]

REACTIONS (5)
  - ACCIDENTAL EXPOSURE [None]
  - OBSTRUCTIVE AIRWAYS DISORDER [None]
  - PNEUMONIA ASPIRATION [None]
  - RED BLOOD CELL COUNT DECREASED [None]
  - WHITE BLOOD CELL COUNT INCREASED [None]
